FAERS Safety Report 8288949-3 (Version None)
Quarter: 2012Q2

REPORT INFORMATION
  Report Type: 
  Country: None (occurrence: None)
  Receive Date: 20120412
  Receipt Date: 20120410
  Transmission Date: 20120825
  Serious: Yes (Hospitalization, Other)
  Sender: FDA-Public Use
  Company Number: ADR-2011-11198

PATIENT
  Age: 4 Year
  Sex: Male

DRUGS (1)
  1. LIORESAL [Suspect]
     Indication: MUSCLE SPASTICITY
     Dosage: MCG, DAILY, INTRAH
     Route: 037

REACTIONS (6)
  - VOMITING [None]
  - ABDOMINAL PAIN [None]
  - PNEUMONIA [None]
  - INFECTION [None]
  - COUGH [None]
  - URINE ANALYSIS ABNORMAL [None]
